FAERS Safety Report 24017594 (Version 1)
Quarter: 2024Q2

REPORT INFORMATION
  Report Type: Spontaneous
  Country: US (occurrence: US)
  Receive Date: 20240627
  Receipt Date: 20240627
  Transmission Date: 20240715
  Serious: No
  Sender: FDA-Public Use
  Company Number: US-BIOGEN-2024BI01271012

PATIENT
  Age: 33 Year
  Sex: Female

DRUGS (1)
  1. SKYCLARYS [Suspect]
     Active Substance: OMAVELOXOLONE
     Indication: Friedreich^s ataxia
     Route: 050

REACTIONS (3)
  - Migraine [Unknown]
  - Panic attack [Unknown]
  - Vomiting [Unknown]

NARRATIVE: CASE EVENT DATE: 20240615
